FAERS Safety Report 9506799 (Version 2)
Quarter: 2013Q4

REPORT INFORMATION
  Report Type: Spontaneous
  Country: SK (occurrence: SK)
  Receive Date: 20130909
  Receipt Date: 20131128
  Transmission Date: 20140711
  Serious: Yes (Hospitalization)
  Sender: FDA-Public Use
  Company Number: SK-BIOGENIDEC-2013BI083696

PATIENT
  Age: 47 Year
  Sex: Female

DRUGS (5)
  1. AVONEX [Suspect]
     Indication: RELAPSING-REMITTING MULTIPLE SCLEROSIS
     Route: 030
     Dates: start: 20120731
  2. BACLOFEN [Concomitant]
     Route: 048
  3. AGAPURIN [Concomitant]
     Route: 048
  4. SORBIFER [Concomitant]
     Route: 048
  5. MILGAMMA [Concomitant]

REACTIONS (3)
  - Dyslipidaemia [Unknown]
  - Anaemia [Unknown]
  - Multiple sclerosis relapse [Recovered/Resolved with Sequelae]
